FAERS Safety Report 6842935-6 (Version None)
Quarter: 2010Q3

REPORT INFORMATION
  Report Type: 
  Country: None (occurrence: None)
  Receive Date: 20100714
  Receipt Date: 20070810
  Transmission Date: 20110219
  Serious: Yes (Other)
  Sender: FDA-Public Use
  Company Number: US-PFIZER INC-2007067152

PATIENT
  Sex: Male
  Weight: 74.4 kg

DRUGS (3)
  1. CHANTIX [Suspect]
     Indication: SMOKING CESSATION THERAPY
     Dates: start: 20070601
  2. ALTACE [Concomitant]
  3. GLYBURIDE [Concomitant]

REACTIONS (1)
  - CEREBROVASCULAR ACCIDENT [None]
